FAERS Safety Report 18617113 (Version 1)
Quarter: 2020Q4

REPORT INFORMATION
  Report Type: Not Available
  Country: US (occurrence: US)
  Receive Date: 20201215
  Receipt Date: 20201215
  Transmission Date: 20210114
  Serious: No
  Sender: FDA-Public Use
  Company Number: US-NEUROCRINE BIOSCIENCES INC.-2020NBI04451

PATIENT
  Age: 22 Year
  Sex: Male

DRUGS (9)
  1. TESTOSTERONE. [Concomitant]
     Active Substance: TESTOSTERONE
  2. TROKENDI XR [Concomitant]
     Active Substance: TOPIRAMATE
  3. CLONIDINE. [Concomitant]
     Active Substance: CLONIDINE
  4. RISPERIDONE. [Concomitant]
     Active Substance: RISPERIDONE
  5. LATUDA [Concomitant]
     Active Substance: LURASIDONE HYDROCHLORIDE
  6. LEVOTHYROXINE. [Concomitant]
     Active Substance: LEVOTHYROXINE
  7. PANTOPRAZOLE [Concomitant]
     Active Substance: PANTOPRAZOLE
  8. SERTRALINE [Concomitant]
     Active Substance: SERTRALINE HYDROCHLORIDE
  9. INGREZZA [Suspect]
     Active Substance: VALBENAZINE
     Indication: TARDIVE DYSKINESIA
     Route: 048
     Dates: start: 20201126

REACTIONS (1)
  - Sedation [Not Recovered/Not Resolved]

NARRATIVE: CASE EVENT DATE: 20201126
